FAERS Safety Report 9369327 (Version 1)
Quarter: 2013Q2

REPORT INFORMATION
  Report Type: Spontaneous
  Country: US (occurrence: None)
  Receive Date: 20130625
  Receipt Date: 20130625
  Transmission Date: 20140414
  Serious: Yes (Hospitalization)
  Sender: FDA-Public Use
  Company Number: None

PATIENT
  Age: 73 Year
  Sex: Male
  Weight: 95 kg

DRUGS (2)
  1. TRAMADOL [Suspect]
     Indication: HYPERTENSION
     Route: 048
     Dates: start: 20130608, end: 20130608
  2. TRAMADOL [Suspect]
     Indication: OVERDOSE
     Route: 048
     Dates: start: 20130608, end: 20130608

REACTIONS (7)
  - Intentional overdose [None]
  - Sedation [None]
  - Dialysis [None]
  - Hypertension [None]
  - Tachycardia [None]
  - Respiratory depression [None]
  - Hyperhidrosis [None]
